FAERS Safety Report 17673759 (Version 1)
Quarter: 2020Q2

REPORT INFORMATION
  Report Type: Spontaneous
  Country: NL (occurrence: NL)
  Receive Date: 20200415
  Receipt Date: 20200415
  Transmission Date: 20200714
  Serious: Yes (Other)
  Sender: FDA-Public Use
  Company Number: NL-009507513-2004NLD003802

PATIENT
  Sex: Female

DRUGS (3)
  1. PANTOPRAZOLE TEVA [Suspect]
     Active Substance: PANTOPRAZOLE SODIUM
     Route: 065
  2. SIMVASTATIN. [Suspect]
     Active Substance: SIMVASTATIN
     Route: 065
  3. ATORVASTATIN TEVA [Suspect]
     Active Substance: ATORVASTATIN
     Route: 065

REACTIONS (2)
  - Myalgia [Unknown]
  - Product commingling [Unknown]
